FAERS Safety Report 9253978 (Version 1)
Quarter: 2013Q2

REPORT INFORMATION
  Report Type: Spontaneous
  Country: US (occurrence: None)
  Receive Date: 20130419
  Receipt Date: 20130419
  Transmission Date: 20140414
  Serious: Yes (Other)
  Sender: FDA-Public Use
  Company Number: ADR-2013-00670

PATIENT
  Sex: Female

DRUGS (2)
  1. LIORESAL INTRATHECAL (BACLOFEN INJECTION) [Suspect]
     Indication: MUSCLE SPASTICITY
  2. LIORESAL INTRATHECAL (BACLOFEN INJECTION) [Suspect]
     Indication: MUSCLE SPASTICITY

REACTIONS (11)
  - Urinary incontinence [None]
  - Nerve injury [None]
  - Post procedural complication [None]
  - Abasia [None]
  - Fall [None]
  - Muscle tightness [None]
  - Muscle spasms [None]
  - Device dislocation [None]
  - Medical device pain [None]
  - Myalgia [None]
  - Back pain [None]
